FAERS Safety Report 15394983 (Version 1)
Quarter: 2018Q3

REPORT INFORMATION
  Report Type: Spontaneous
  Country: JP (occurrence: JP)
  Receive Date: 20180918
  Receipt Date: 20180918
  Transmission Date: 20181010
  Serious: Yes (Other)
  Sender: FDA-Public Use
  Company Number: JP-009507513-1809JPN001014J

PATIENT
  Age: 50 Year
  Sex: Female

DRUGS (1)
  1. TEMODAL [Suspect]
     Active Substance: TEMOZOLOMIDE
     Indication: MALIGNANT NEOPLASM OF SPINAL CORD
     Dosage: UNK
     Route: 048

REACTIONS (3)
  - Disease progression [Unknown]
  - Product prescribing issue [Unknown]
  - Product use in unapproved indication [Unknown]
